FAERS Safety Report 16586215 (Version 1)
Quarter: 2019Q3

REPORT INFORMATION
  Report Type: Spontaneous
  Country: US (occurrence: US)
  Receive Date: 20190717
  Receipt Date: 20190717
  Transmission Date: 20191004
  Serious: Yes (Hospitalization, Other)
  Sender: FDA-Public Use
  Company Number: US-AMGEN-USASP2019111633

PATIENT
  Age: 75 Year
  Sex: Female
  Weight: 32 kg

DRUGS (6)
  1. CBD OIL [Concomitant]
     Active Substance: CANNABIDIOL\HERBALS
     Dosage: UNK
  2. MELATONIN [Concomitant]
     Active Substance: MELATONIN
     Dosage: UNK
  3. EPSOM SALT [Concomitant]
     Active Substance: MAGNESIUM SULFATE
     Dosage: UNK
  4. MAGNESIUM [Concomitant]
     Active Substance: MAGNESIUM
     Dosage: UNK
  5. ENBREL [Suspect]
     Active Substance: ETANERCEPT
     Indication: RHEUMATOID ARTHRITIS
     Dosage: 50 MILLIGRAM, QWK
     Route: 065
     Dates: end: 201902
  6. ENBREL [Suspect]
     Active Substance: ETANERCEPT
     Dosage: 50 MILLIGRAM, QWK
     Route: 065
     Dates: start: 201904

REACTIONS (11)
  - Weight decreased [Unknown]
  - Unevaluable event [Unknown]
  - Finger deformity [Unknown]
  - Sleep disorder due to general medical condition, insomnia type [Unknown]
  - Hand deformity [Unknown]
  - Decreased immune responsiveness [Unknown]
  - Rheumatoid arthritis [Not Recovered/Not Resolved]
  - Malabsorption [Unknown]
  - Throat tightness [Unknown]
  - Injection site pain [Not Recovered/Not Resolved]
  - Disease complication [Unknown]

NARRATIVE: CASE EVENT DATE: 2019
